FAERS Safety Report 8470948-X (Version None)
Quarter: 2012Q2

REPORT INFORMATION
  Report Type: 
  Country: None (occurrence: None)
  Receive Date: 20120627
  Receipt Date: 20120618
  Transmission Date: 20120825
  Serious: Yes (Death, Hospitalization)
  Sender: FDA-Public Use
  Company Number: US-SANOFI-AVENTIS-2012SA042595

PATIENT
  Age: 73 Year
  Sex: Female

DRUGS (11)
  1. MULTAQ [Suspect]
     Route: 065
     Dates: start: 20110701
  2. ALENDRONATE SODIUM [Concomitant]
  3. CALCIUM [Concomitant]
  4. ACETAMINOPHEN [Suspect]
     Route: 065
  5. DILTIAZEM HYDROCHOLORIDE [Concomitant]
  6. VICODIN [Suspect]
     Route: 065
  7. LASIX [Concomitant]
  8. VITAMIN D [Concomitant]
  9. VITAMIN TAB [Concomitant]
  10. ASPIRIN [Concomitant]
  11. METOPROLOL TARTRATE [Concomitant]

REACTIONS (2)
  - HEPATITIS ACUTE [None]
  - HEPATIC FAILURE [None]
